FAERS Safety Report 10242218 (Version 6)
Quarter: 2015Q3

REPORT INFORMATION
  Report Type: Spontaneous
  Country: US (occurrence: US)
  Receive Date: 20140617
  Receipt Date: 20150915
  Transmission Date: 20151125
  Serious: Yes (Disabling, Other)
  Sender: FDA-Public Use
  Company Number: US-009507513-1406USA007413

PATIENT
  Sex: Male
  Weight: 85.71 kg

DRUGS (3)
  1. FINASTERIDE. [Suspect]
     Active Substance: FINASTERIDE
     Indication: ALOPECIA
     Dosage: 1.25 MG, UNK
     Route: 048
     Dates: start: 20070119, end: 20070605
  2. PROPECIA [Suspect]
     Active Substance: FINASTERIDE
     Indication: ANDROGENETIC ALOPECIA
     Dosage: 1 MG, QD
     Route: 048
     Dates: start: 200305, end: 200403
  3. PROPECIA [Suspect]
     Active Substance: FINASTERIDE
     Indication: ALOPECIA

REACTIONS (47)
  - Lethargy [Unknown]
  - Anxiety [Not Recovered/Not Resolved]
  - Disturbance in attention [Unknown]
  - Genital hypoaesthesia [Unknown]
  - Mania [Unknown]
  - Nausea [Unknown]
  - Gluten sensitivity [Unknown]
  - Libido decreased [Not Recovered/Not Resolved]
  - Male orgasmic disorder [Unknown]
  - Infection [Unknown]
  - Chest pain [Unknown]
  - Abdominal pain [Unknown]
  - Anhedonia [Unknown]
  - Erectile dysfunction [Unknown]
  - Sexual dysfunction [Not Recovered/Not Resolved]
  - Circadian rhythm sleep disorder [Unknown]
  - Vomiting [Unknown]
  - Ejaculation failure [Not Recovered/Not Resolved]
  - Fatigue [Not Recovered/Not Resolved]
  - Hyperlipidaemia [Unknown]
  - Weight decreased [Unknown]
  - Epididymitis [Unknown]
  - Stress [Unknown]
  - Feeling abnormal [Not Recovered/Not Resolved]
  - Cognitive disorder [Not Recovered/Not Resolved]
  - Wrong technique in product usage process [Unknown]
  - Bradyphrenia [Unknown]
  - Apathy [Unknown]
  - Insomnia [Not Recovered/Not Resolved]
  - Hypersomnia [Unknown]
  - Ejaculation disorder [Unknown]
  - Drug ineffective [Unknown]
  - Major depression [Not Recovered/Not Resolved]
  - Flat affect [Unknown]
  - Urethral stenosis [Unknown]
  - Testicular mass [Unknown]
  - Hypogonadism [Unknown]
  - Essential hypertension [Unknown]
  - Affective disorder [Unknown]
  - Disturbance in sexual arousal [Unknown]
  - Suicidal ideation [Unknown]
  - Erectile dysfunction [Not Recovered/Not Resolved]
  - Ejaculation disorder [Not Recovered/Not Resolved]
  - Decreased appetite [Unknown]
  - Malaise [Unknown]
  - Abdominal distension [Unknown]
  - Vitamin D deficiency [Unknown]

NARRATIVE: CASE EVENT DATE: 2004
